FAERS Safety Report 18227100 (Version 13)
Quarter: 2021Q4

REPORT INFORMATION
  Report Type: Spontaneous
  Country: US (occurrence: US)
  Receive Date: 20200903
  Receipt Date: 20211213
  Transmission Date: 20220303
  Serious: Yes (Other)
  Sender: FDA-Public Use
  Company Number: US-PFIZER INC-2020341440

PATIENT
  Age: 49 Year
  Sex: Female

DRUGS (2)
  1. IBRANCE [Suspect]
     Active Substance: PALBOCICLIB
     Indication: Breast cancer female
     Dosage: 125 MG, ONCE A DAY FOR 21 DAYS EVERY 28 DAYS
     Route: 048
     Dates: start: 20200804
  2. IBRANCE [Suspect]
     Active Substance: PALBOCICLIB
     Dosage: 100 MG
     Dates: start: 20211029

REACTIONS (13)
  - Foot fracture [Unknown]
  - Arthralgia [Not Recovered/Not Resolved]
  - Alopecia [Not Recovered/Not Resolved]
  - Nausea [Not Recovered/Not Resolved]
  - Fatigue [Unknown]
  - Bone pain [Not Recovered/Not Resolved]
  - Agitation [Unknown]
  - Contusion [Not Recovered/Not Resolved]
  - Rhinorrhoea [Unknown]
  - Lacrimation increased [Unknown]
  - Vomiting [Not Recovered/Not Resolved]
  - Neoplasm progression [Unknown]
  - Dry mouth [Unknown]

NARRATIVE: CASE EVENT DATE: 20200101
